FAERS Safety Report 18044210 (Version 1)
Quarter: 2020Q3

REPORT INFORMATION
  Report Type: Spontaneous
  Country: CN (occurrence: CN)
  Receive Date: 20200720
  Receipt Date: 20200720
  Transmission Date: 20201104
  Serious: Yes (Other)
  Sender: FDA-Public Use
  Company Number: CN-ROCHE-2637022

PATIENT
  Age: 22 Year
  Sex: Male

DRUGS (8)
  1. OXALIPLATIN. [Suspect]
     Active Substance: OXALIPLATIN
     Indication: ADENOCARCINOMA OF COLON
     Dosage: INJECTION
     Route: 065
     Dates: start: 201804
  2. IRINOTECAN HYDROCHLORIDE INJECTION [Suspect]
     Active Substance: IRINOTECAN HYDROCHLORIDE
     Indication: ADENOCARCINOMA OF COLON
     Route: 065
     Dates: start: 20180908
  3. CALCIUM FOLINATE [Suspect]
     Active Substance: LEUCOVORIN CALCIUM
     Indication: ADENOCARCINOMA OF COLON
     Dosage: DAY 1 TO DAY 2
     Route: 065
     Dates: start: 20180908
  4. XELODA [Suspect]
     Active Substance: CAPECITABINE
     Indication: ADENOCARCINOMA OF COLON
     Dosage: 2.0G IN THE MORNING AND 1.5G IN THE EVENING
     Route: 048
     Dates: start: 20180401
  5. AVASTIN [Suspect]
     Active Substance: BEVACIZUMAB
     Indication: ADENOCARCINOMA OF COLON
     Route: 065
     Dates: start: 20180908
  6. REGORAFENIB. [Suspect]
     Active Substance: REGORAFENIB
     Indication: ADENOCARCINOMA OF COLON
     Route: 048
     Dates: start: 201904
  7. 5?FLUOROURACIL [Suspect]
     Active Substance: FLUOROURACIL
     Indication: ADENOCARCINOMA OF COLON
     Dosage: 0.8 (THE UNIT WAS NOT PROVIDED) BY INTRAVENOUS PUSH AND 4.5 (THE UNIT WAS NOT PROVIDED) BY CONTINUOU
     Route: 042
     Dates: start: 20180908
  8. FRUQUINTINIB. [Suspect]
     Active Substance: FRUQUINTINIB
     Indication: ADENOCARCINOMA OF COLON
     Route: 065
     Dates: start: 201909

REACTIONS (7)
  - Nephrolithiasis [Unknown]
  - Thymus disorder [Unknown]
  - Thymus enlargement [Unknown]
  - Inflammation [Unknown]
  - Pelvic fluid collection [Unknown]
  - Hyperplastic cholecystopathy [Unknown]
  - Ascites [Unknown]
